FAERS Safety Report 19394039 (Version 1)
Quarter: 2021Q2

REPORT INFORMATION
  Report Type: Spontaneous
  Country: US (occurrence: US)
  Receive Date: 20210608
  Receipt Date: 20210608
  Transmission Date: 20210717
  Serious: No
  Sender: FDA-Public Use
  Company Number: None

PATIENT
  Age: 69 Year
  Sex: Female
  Weight: 51.75 kg

DRUGS (8)
  1. CA [Concomitant]
  2. ZOLPIDEM TARTARATE [Suspect]
     Active Substance: ZOLPIDEM TARTRATE
     Indication: INSOMNIA
     Dosage: QUANTITY:1 TABLET(S);?
     Route: 048
     Dates: start: 19990101
  3. C [Concomitant]
  4. D [Concomitant]
  5. GLUCOSAMINE [Concomitant]
     Active Substance: GLUCOSAMINE
  6. COLAGEN [Concomitant]
  7. FISH OIL [Concomitant]
     Active Substance: FISH OIL
  8. HRT [Concomitant]
     Active Substance: UNSPECIFIED INGREDIENT

REACTIONS (2)
  - Dry mouth [None]
  - Somnolence [None]

NARRATIVE: CASE EVENT DATE: 20210601
